FAERS Safety Report 21237440 (Version 2)
Quarter: 2022Q3

REPORT INFORMATION
  Report Type: Spontaneous
  Country: US (occurrence: US)
  Receive Date: 20220822
  Receipt Date: 20220914
  Transmission Date: 20221027
  Serious: Yes (Other)
  Sender: FDA-Public Use
  Company Number: US-PFIZER INC-202201070689

PATIENT
  Age: 32 Year
  Sex: Female

DRUGS (2)
  1. IBRANCE [Suspect]
     Active Substance: PALBOCICLIB
     Dosage: TAKE 1 TABLET DAILY FOR 21 DAYS FOLLOWED BY 7 DAYS OFF
     Dates: start: 20220707
  2. ANASTROZOLE [Suspect]
     Active Substance: ANASTROZOLE
     Dosage: UNK

REACTIONS (5)
  - Oophorectomy [Unknown]
  - Vomiting [Recovered/Resolved]
  - Nausea [Not Recovered/Not Resolved]
  - Somnolence [Not Recovered/Not Resolved]
  - Fatigue [Not Recovered/Not Resolved]

NARRATIVE: CASE EVENT DATE: 20220101
